FAERS Safety Report 12275727 (Version 2)
Quarter: 2016Q2

REPORT INFORMATION
  Report Type: Spontaneous
  Country: IT (occurrence: IT)
  Receive Date: 20160418
  Receipt Date: 20160419
  Transmission Date: 20160815
  Serious: Yes (Death, Hospitalization)
  Sender: FDA-Public Use
  Company Number: IT-ROCHE-1741658

PATIENT
  Age: 79 Year
  Sex: Male

DRUGS (17)
  1. LEVACT (ITALY) [Suspect]
     Active Substance: BENDAMUSTINE HYDROCHLORIDE
     Indication: B-CELL LYMPHOMA
     Dosage: CYCLE 1- DAY 1 + 2 -120 MG?CYCLE 2- DAY 1 + 2 -110 MG
     Route: 042
     Dates: start: 20160201, end: 20160202
  2. MABTHERA [Suspect]
     Active Substance: RITUXIMAB
     Indication: B-CELL LYMPHOMA
     Dosage: TOTAL DAY 1 (1ST CYCLE); 600 MG DAY 1 (2ND CYCLE)?ON DAY 8 OF THE 1ST CYCLE OF CHEMOTHERAPY
     Route: 058
     Dates: start: 20160201, end: 20160202
  3. LEVACT (ITALY) [Suspect]
     Active Substance: BENDAMUSTINE HYDROCHLORIDE
     Dosage: CYCLE 1- DAY 1 + 2 -120 MG? CYCLE 2- DAY 1 + 2 -110 MG
     Route: 042
     Dates: start: 20160302, end: 20160303
  4. ZYLORIC [Concomitant]
     Active Substance: ALLOPURINOL
     Dosage: 300 MG TABLETS 30 SCORED TABLETS
     Route: 048
     Dates: start: 201602
  5. ARIXTRA [Concomitant]
     Active Substance: FONDAPARINUX SODIUM
     Dosage: 1 VIAL SC PER DAY
     Route: 058
  6. MABTHERA [Suspect]
     Active Substance: RITUXIMAB
     Dosage: TOTAL DAY 1 (1ST CYCLE); 600 MG DAY 1 (2ND CYCLE)?ON DAY 8 OF THE 1ST CYCLE OF CHEMOTHERAPY
     Route: 058
     Dates: start: 20160209
  7. ZEFFIX [Concomitant]
     Active Substance: LAMIVUDINE
     Dosage: 28 X 100 MG FILM-COATED TABLETS
     Route: 048
     Dates: start: 20160201
  8. BACTRIM [Concomitant]
     Active Substance: SULFAMETHOXAZOLE\TRIMETHOPRIM
     Dosage: DF?1 TAB 2 TIMES PER DAY (TUESDAY AND FRIDAY)
     Route: 048
     Dates: start: 20160201
  9. DELTACORTENE [Concomitant]
     Active Substance: PREDNISONE
     Route: 048
  10. REMERON [Concomitant]
     Active Substance: MIRTAZAPINE
     Route: 065
  11. DAPAROX [Concomitant]
     Active Substance: PAROXETINE HYDROCHLORIDE
     Route: 065
  12. CALCIO D [Concomitant]
     Active Substance: CALCIUM\CHOLECALCIFEROL
     Route: 065
  13. NEULASTA [Concomitant]
     Active Substance: PEGFILGRASTIM
     Dosage: PROPHYLAXIS FOR TUMOUR LYSIS SYNDROME
     Route: 065
     Dates: start: 20160302, end: 20160303
  14. MABTHERA [Suspect]
     Active Substance: RITUXIMAB
     Dosage: TOTAL DAY 1 (1ST CYCLE); 600 MG DAY 1 (2ND CYCLE)?ON DAY 8 OF THE 1ST CYCLE OF CHEMOTHERAPY
     Route: 058
     Dates: start: 20160302, end: 20160303
  15. FASTURTEC [Concomitant]
     Active Substance: RASBURICASE
     Indication: PROPHYLAXIS
     Route: 065
     Dates: start: 20160201, end: 20160202
  16. NEULASTA [Concomitant]
     Active Substance: PEGFILGRASTIM
     Indication: PROPHYLAXIS
     Dosage: PROPHYLAXIS FOR TUMOUR LYSIS SYNDROME
     Route: 065
     Dates: start: 20160201, end: 20160202
  17. FASTURTEC [Concomitant]
     Active Substance: RASBURICASE
     Route: 065
     Dates: start: 20160302, end: 20160303

REACTIONS (7)
  - Escherichia sepsis [Fatal]
  - Skin exfoliation [Fatal]
  - Dermatitis exfoliative [Fatal]
  - Erythema multiforme [Fatal]
  - Rash generalised [Fatal]
  - Staphylococcal sepsis [Fatal]
  - Multiple organ dysfunction syndrome [Fatal]

NARRATIVE: CASE EVENT DATE: 20160303
